FAERS Safety Report 25767915 (Version 1)
Quarter: 2025Q3

REPORT INFORMATION
  Report Type: Spontaneous
  Country: US (occurrence: US)
  Receive Date: 20250905
  Receipt Date: 20250905
  Transmission Date: 20251020
  Serious: No
  Sender: DOMPE FARMACEUTICI
  Company Number: US-FARMAPROD-202505-1630

PATIENT
  Age: 72 Year
  Sex: Female

DRUGS (15)
  1. OXERVATE [Suspect]
     Active Substance: CENEGERMIN-BKBJ
     Indication: Neurotrophic keratopathy
     Route: 047
     Dates: start: 20250505
  2. IBUPROFEN [Concomitant]
     Active Substance: IBUPROFEN
  3. CALCIUM [Concomitant]
     Active Substance: CALCIUM
  4. VITAMIN D2 [Concomitant]
     Active Substance: ERGOCALCIFEROL
  5. MAGNESIUM [Concomitant]
     Active Substance: MAGNESIUM
  6. OCUVITE ADULT 50 PLUS [Concomitant]
  7. LYSINE [Concomitant]
     Active Substance: LYSINE
  8. GENTEAL TEARS SEVERE [Concomitant]
     Active Substance: HYPROMELLOSE 2910 (4000 MPA.S)
  9. IVIZIA [Concomitant]
     Active Substance: POVIDONE
  10. MIEBO [Concomitant]
     Active Substance: PERFLUOROHEXYLOCTANE
  11. FORTEO [Concomitant]
     Active Substance: TERIPARATIDE
  12. ENBREL [Concomitant]
     Active Substance: ETANERCEPT
  13. LOVASTATIN [Concomitant]
     Active Substance: LOVASTATIN
  14. SERTRALINE HYDROCHLORIDE [Concomitant]
     Active Substance: SERTRALINE HYDROCHLORIDE
  15. AUTOLOGOUS HUMAN CORNEAL EPITHELIAL CELLS [Concomitant]
     Active Substance: AUTOLOGOUS HUMAN CORNEAL EPITHELIAL CELLS

REACTIONS (3)
  - Eye pain [Unknown]
  - Swelling of eyelid [Unknown]
  - Headache [Unknown]

NARRATIVE: CASE EVENT DATE: 20250506
